FAERS Safety Report 12426224 (Version 2)
Quarter: 2016Q2

REPORT INFORMATION
  Report Type: Spontaneous
  Country: DE (occurrence: DE)
  Receive Date: 20160601
  Receipt Date: 20160614
  Transmission Date: 20160815
  Serious: Yes (Hospitalization)
  Sender: FDA-Public Use
  Company Number: DE-PFIZER INC-2016282525

PATIENT
  Sex: Female

DRUGS (4)
  1. CLONIDIN [Suspect]
     Active Substance: CLONIDINE
     Dosage: 0.3 MG, 2X/DAY (1-0-1)
  2. AMLODIPINE BESILATE [Suspect]
     Active Substance: AMLODIPINE BESYLATE
     Dosage: 5 MG, 2X/DAY (1-0-1)
  3. DOXAZOSIN MESILATE [Suspect]
     Active Substance: DOXAZOSIN MESYLATE
     Dosage: 8 MG, 1X/DAY (1-0-0)
  4. RAMIPRIL. [Suspect]
     Active Substance: RAMIPRIL
     Dosage: 5 MG, 2X/DAY (1-0-1)

REACTIONS (2)
  - Dizziness [Unknown]
  - Orthostatic hypotension [Recovered/Resolved]
